FAERS Safety Report 7134778-3 (Version None)
Quarter: 2010Q4

REPORT INFORMATION
  Report Type: 
  Country: None (occurrence: None)
  Receive Date: 20101203
  Receipt Date: 20101129
  Transmission Date: 20110411
  Serious: Yes (Other)
  Sender: FDA-Public Use
  Company Number: CZ-ROCHE-745053

PATIENT
  Age: 61 Year
  Sex: Female

DRUGS (3)
  1. AVASTIN [Suspect]
     Route: 065
  2. XELODA [Suspect]
     Route: 065
  3. OXALIPLATIN [Suspect]
     Route: 065

REACTIONS (5)
  - APHASIA [None]
  - CEREBRAL HAEMORRHAGE [None]
  - HYPERTENSION [None]
  - NAUSEA [None]
  - VOMITING [None]
